FAERS Safety Report 11595496 (Version 1)
Quarter: 2015Q4

REPORT INFORMATION
  Report Type: Spontaneous
  Country: US (occurrence: None)
  Receive Date: 20151002
  Receipt Date: 20151002
  Transmission Date: 20160304
  Serious: Yes (Hospitalization)
  Sender: FDA-Public Use
  Company Number: US-H14001-15-00325

PATIENT
  Age: 68 Year
  Sex: Male
  Weight: 90.7 kg

DRUGS (7)
  1. CONSOLIDATION CHEMOTHERAPY (CHEMOTHERAPEUTICS) (UNKNOWN) [Suspect]
     Active Substance: UNSPECIFIED INGREDIENT
     Indication: ACUTE MYELOID LEUKAEMIA
     Dates: start: 20141015, end: 20141025
  2. LEVETIRACETAM (LEVETIRACETAM) (UNKNOWN) (LEVETIRACETAM) [Concomitant]
  3. CYTARABINE (CYTARABINE) (UNKNOWN) (CYTARABINE) [Suspect]
     Active Substance: CYTARABINE
     Indication: PRODUCT USED FOR UNKNOWN INDICATION
  4. DAUNORUBICIN (DAUNORUBICIN) (UNKNOWN) (DAUNORUBICIN) [Suspect]
     Active Substance: DAUNORUBICIN
     Indication: PRODUCT USED FOR UNKNOWN INDICATION
  5. BLINDED STUDY DRUG MEDICATION (UNKNOWN) [Suspect]
     Active Substance: INVESTIGATIONAL PRODUCT
     Indication: ACUTE MYELOID LEUKAEMIA
     Dosage: (100 MG, 1 IN 1 D)
     Route: 048
     Dates: start: 20140723
  6. CARVEDILOL (CARVEDILOL) (UNKNOWN) (CARVEDILOL) [Concomitant]
  7. ALLOPURINOL (ALLOPURINOL) (UNKNOWN) (ALLOPURINOL) [Concomitant]

REACTIONS (1)
  - Neutropenia [None]

NARRATIVE: CASE EVENT DATE: 20141026
